FAERS Safety Report 5814187-7 (Version None)
Quarter: 2008Q3

REPORT INFORMATION
  Report Type: 
  Country: None (occurrence: None)
  Receive Date: 20080715
  Receipt Date: 20080709
  Transmission Date: 20090109
  Serious: Yes (Other)
  Sender: FDA-Public Use
  Company Number: CHPA2008US11432

PATIENT
  Age: 77 Year
  Sex: Female

DRUGS (1)
  1. GAS-X CHEWABLE TABLETS PEPPERMINT CREME (NCH)(SIMETHICONE) CHEWABLE TA [Suspect]
     Indication: FLATULENCE
     Dosage: 160 MG, PRN X MANY YEARS, ORAL
     Route: 048

REACTIONS (5)
  - ANXIETY [None]
  - BLOOD CHOLESTEROL INCREASED [None]
  - BLOOD GLUCOSE INCREASED [None]
  - HYPERTENSION [None]
  - OEDEMA PERIPHERAL [None]
